FAERS Safety Report 17404442 (Version 1)
Quarter: 2020Q1

REPORT INFORMATION
  Report Type: Spontaneous
  Country: IL (occurrence: IL)
  Receive Date: 20200211
  Receipt Date: 20200211
  Transmission Date: 20200409
  Serious: Yes (Other)
  Sender: FDA-Public Use
  Company Number: IL-PFIZER INC-2020058808

PATIENT
  Age: 22 Year
  Sex: Male

DRUGS (1)
  1. BESPONSA [Suspect]
     Active Substance: INOTUZUMAB OZOGAMICIN
     Dosage: UNK (RECEIVED ONLY ONE CYCLE OF INOTUZUMAB)

REACTIONS (3)
  - Ascites [Recovered/Resolved]
  - Weight increased [Recovered/Resolved]
  - Blood bilirubin increased [Recovered/Resolved]
